FAERS Safety Report 7764759-8 (Version None)
Quarter: 2011Q3

REPORT INFORMATION
  Report Type: 
  Country: None (occurrence: None)
  Receive Date: 20110921
  Receipt Date: 20110921
  Transmission Date: 20111222
  Serious: Yes (Disabling)
  Sender: FDA-Public Use
  Company Number: None

PATIENT
  Age: 66 Year
  Sex: Female
  Weight: 82.1 kg

DRUGS (1)
  1. CRESTOR [Suspect]
     Indication: BLOOD CHOLESTEROL INCREASED
     Dosage: 5 MG
     Route: 048
     Dates: start: 20100823, end: 20110815

REACTIONS (6)
  - MUSCLE SPASMS [None]
  - ARTHRALGIA [None]
  - DISEASE PROGRESSION [None]
  - PAIN [None]
  - PARKINSON'S DISEASE [None]
  - MUSCULAR WEAKNESS [None]
